FAERS Safety Report 7170845-6 (Version None)
Quarter: 2010Q4

REPORT INFORMATION
  Report Type: 
  Country: None (occurrence: None)
  Receive Date: 20101217
  Receipt Date: 20101213
  Transmission Date: 20110411
  Serious: Yes (Death)
  Sender: FDA-Public Use
  Company Number: JP-CEPHALON-2010006422

PATIENT
  Sex: Female

DRUGS (12)
  1. TREANDA [Suspect]
     Indication: MULTIPLE MYELOMA
     Route: 042
     Dates: start: 20100909, end: 20100910
  2. TREANDA [Suspect]
     Route: 042
     Dates: start: 20101019, end: 20101020
  3. TREANDA [Suspect]
     Route: 042
     Dates: start: 20101130, end: 20101201
  4. BIFIDOBACTERIUM ANIMALIS [Concomitant]
     Dates: start: 20101206
  5. PREDONINE [Concomitant]
     Dates: start: 20100909, end: 20101203
  6. TAKEPRON [Concomitant]
     Dates: start: 20100903
  7. GASMOTIN [Concomitant]
     Dates: start: 20100903
  8. DIFLUCAN [Concomitant]
     Dates: start: 20100903
  9. ZOVIRAX [Concomitant]
     Dates: start: 20100903
  10. MILMAG [Concomitant]
     Dates: start: 20100903
  11. LOXONIN [Concomitant]
     Dates: start: 20100903
  12. BIOLACTIS [Concomitant]
     Dates: start: 20101206

REACTIONS (2)
  - ACUTE RESPIRATORY DISTRESS SYNDROME [None]
  - PNEUMONIA [None]
